FAERS Safety Report 12777028 (Version 1)
Quarter: 2016Q3

REPORT INFORMATION
  Report Type: Report from Study
  Country: GB (occurrence: GB)
  Receive Date: 20160923
  Receipt Date: 20160923
  Transmission Date: 20161109
  Serious: Yes (Hospitalization)
  Sender: FDA-Public Use
  Company Number: GB-ASTRAZENECA-2016SE79430

PATIENT
  Age: 20700 Day
  Sex: Female
  Weight: 93 kg

DRUGS (9)
  1. DALTEPARIN [Concomitant]
     Active Substance: DALTEPARIN
     Dates: start: 201509
  2. BENDROFLUMETHIAZIDE [Concomitant]
     Active Substance: BENDROFLUMETHIAZIDE
     Route: 065
     Dates: start: 20160715
  3. PARACETAMOL [Concomitant]
     Active Substance: ACETAMINOPHEN
     Dates: start: 20160621
  4. LISINOPRIL. [Concomitant]
     Active Substance: LISINOPRIL
     Route: 065
     Dates: start: 20160715
  5. DENOSUMAB [Concomitant]
     Active Substance: DENOSUMAB
     Route: 065
     Dates: start: 20150508, end: 20160627
  6. PIRITON [Concomitant]
     Active Substance: CHLORPHENIRAMINE MALEATE
     Route: 065
     Dates: start: 20160715
  7. ZD6474 CODE NOT BROKEN [Suspect]
     Active Substance: VANDETANIB
     Indication: BREAST CANCER METASTATIC
     Route: 048
     Dates: start: 20160627, end: 20160715
  8. FULVESTRANT [Suspect]
     Active Substance: FULVESTRANT
     Indication: BREAST CANCER METASTATIC
     Dosage: 500 MG ON D1, D15, THEN D1 OG EACH 28 DAY CYCLE
     Route: 030
     Dates: start: 20160627
  9. ADCAL-D3 [Concomitant]
     Active Substance: CALCIUM CARBONATE\CHOLECALCIFEROL
     Dates: start: 20150508

REACTIONS (1)
  - Photosensitivity reaction [Recovered/Resolved]

NARRATIVE: CASE EVENT DATE: 20160720
